FAERS Safety Report 8427995-3 (Version None)
Quarter: 2012Q2

REPORT INFORMATION
  Report Type: 
  Country: None (occurrence: None)
  Receive Date: 20120611
  Receipt Date: 20120607
  Transmission Date: 20120825
  Serious: Yes (Hospitalization)
  Sender: FDA-Public Use
  Company Number: PHHO2010CA14783

PATIENT
  Sex: Male

DRUGS (6)
  1. BELATACEPT [Suspect]
     Indication: RENAL TRANSPLANT
     Dosage: 435 MG,1 MONTH
     Route: 042
     Dates: start: 20060802
  2. PREDNISONE TAB [Suspect]
     Indication: RENAL TRANSPLANT
     Dosage: 5 MG, DAY
     Route: 048
     Dates: start: 20061121
  3. PREDNISONE TAB [Suspect]
     Dosage: 5 MG, DAY
     Route: 048
     Dates: start: 20100916
  4. CRESTOR [Concomitant]
     Dosage: UNK
     Dates: start: 20111118
  5. MYFORTIC [Suspect]
     Indication: RENAL TRANSPLANT
     Dosage: 360 MG, BID
     Route: 048
     Dates: start: 20090829
  6. MYFORTIC [Suspect]
     Dosage: 720 MG, 2/1 DAY
     Route: 048
     Dates: start: 20120114

REACTIONS (11)
  - RENAL CELL CARCINOMA [None]
  - HYPOTENSION [None]
  - CHILLS [None]
  - NAUSEA [None]
  - ABDOMINAL ADHESIONS [None]
  - CHEST PAIN [None]
  - PYREXIA [None]
  - ABDOMINAL PAIN [None]
  - PNEUMOPERITONEUM [None]
  - LARGE INTESTINE PERFORATION [None]
  - ENTEROCOCCAL SEPSIS [None]
